FAERS Safety Report 18577516 (Version 2)
Quarter: 2020Q4

REPORT INFORMATION
  Report Type: Spontaneous
  Country: US (occurrence: US)
  Receive Date: 20201204
  Receipt Date: 20201211
  Transmission Date: 20210114
  Serious: Yes (Other)
  Sender: FDA-Public Use
  Company Number: US-CIPLA LTD.-2020US09003

PATIENT

DRUGS (5)
  1. SALBUTAMOL [Suspect]
     Active Substance: ALBUTEROL
     Indication: ASTHMA
     Dosage: 2 PUFFS BY MOUTH, EVERY 4-6 HRS, PRN (AS NEEDED)
     Dates: start: 20201022, end: 20201121
  2. SALBUTAMOL [Suspect]
     Active Substance: ALBUTEROL
     Indication: COUGH
  3. MAGNESIUM [Concomitant]
     Active Substance: MAGNESIUM
     Indication: MINERAL SUPPLEMENTATION
     Dosage: UNK, QD (A SPOONFUL AT NIGHT)
     Route: 065
  4. SALBUTAMOL [Suspect]
     Active Substance: ALBUTEROL
     Indication: WHEEZING
  5. ADVAIR HFA [Concomitant]
     Active Substance: FLUTICASONE PROPIONATE\SALMETEROL XINAFOATE
     Indication: CHRONIC OBSTRUCTIVE PULMONARY DISEASE
     Dosage: UNK, BID (TWICE, ONCE IN THE MORNING AND ONCE AT NIGHT) (250/50)
     Route: 065

REACTIONS (3)
  - Off label use [Unknown]
  - Drug ineffective [Recovered/Resolved]
  - Product use in unapproved indication [Unknown]

NARRATIVE: CASE EVENT DATE: 20201121
